FAERS Safety Report 16860005 (Version 7)
Quarter: 2020Q1

REPORT INFORMATION
  Report Type: Report from Study
  Country: VN (occurrence: VN)
  Receive Date: 20190927
  Receipt Date: 20200304
  Transmission Date: 20200409
  Serious: Yes (Hospitalization, Other)
  Sender: FDA-Public Use
  Company Number: VN-ROCHE-2407625

PATIENT
  Age: 76 Year
  Sex: Male
  Weight: 51 kg

DRUGS (7)
  1. OMEZ [OMEPRAZOLE] [Concomitant]
     Active Substance: OMEPRAZOLE
     Indication: CELLULITIS OF MALE EXTERNAL GENITAL ORGAN
     Route: 048
     Dates: start: 20191017, end: 20191024
  2. PARACETAMOL [Concomitant]
     Active Substance: ACETAMINOPHEN
     Route: 048
  3. ATEZOLIZUMAB. [Suspect]
     Active Substance: ATEZOLIZUMAB
     Indication: NON-SMALL CELL LUNG CANCER
     Dosage: MOST RECENT DOSE OF ATEZOLIZUMAB PRIOR TO THE ONSET OF LIVER INJURY AND GASTRIC PERFORATION: 26/JUL/
     Route: 041
     Dates: start: 20181114
  4. PREDNISONE. [Suspect]
     Active Substance: PREDNISONE
     Indication: PRODUCT USED FOR UNKNOWN INDICATION
     Route: 065
  5. URSOBIL [Suspect]
     Active Substance: URSODIOL
     Indication: LIVER INJURY
     Route: 048
     Dates: start: 20190816, end: 20191119
  6. FOSFOMYCIN [Concomitant]
     Active Substance: FOSFOMYCIN
     Indication: CELLULITIS OF MALE EXTERNAL GENITAL ORGAN
     Route: 048
     Dates: start: 20191011, end: 20191017
  7. VOLTAREN [DICLOFENAC] [Suspect]
     Active Substance: DICLOFENAC SODIUM
     Indication: CELLULITIS OF MALE EXTERNAL GENITAL ORGAN
     Dosage: 0.5 TABLET
     Route: 048
     Dates: start: 20191017, end: 20191119

REACTIONS (2)
  - Liver injury [Recovered/Resolved]
  - Gastric perforation [Recovering/Resolving]

NARRATIVE: CASE EVENT DATE: 20190815
